FAERS Safety Report 6427054-5 (Version None)
Quarter: 2009Q4

REPORT INFORMATION
  Report Type: 
  Country: None (occurrence: None)
  Receive Date: 20091103
  Receipt Date: 20091103
  Transmission Date: 20100525
  Serious: Yes (Other)
  Sender: FDA-Public Use
  Company Number: None

PATIENT
  Age: 48 Year
  Sex: Female
  Weight: 86.1834 kg

DRUGS (1)
  1. SAVELLA [Suspect]
     Indication: FIBROMYALGIA
     Dosage: DAY 1/12.5, DAY 2-3/12.5 MG  2 DAILY ; DAY 4-7/25 MG 2 ; DAY 8-14 50M  2 DAILY -50 MG-
     Dates: start: 20091012, end: 20091024

REACTIONS (10)
  - AGITATION [None]
  - AMNESIA [None]
  - ANXIETY [None]
  - DEPRESSION [None]
  - DYSPNOEA [None]
  - HYPOAESTHESIA [None]
  - INSOMNIA [None]
  - PAIN [None]
  - PANIC REACTION [None]
  - TENSION HEADACHE [None]
